FAERS Safety Report 5008340-2 (Version None)
Quarter: 2006Q2

REPORT INFORMATION
  Report Type: 
  Country: None (occurrence: None)
  Receive Date: 20060403
  Receipt Date: 20050728
  Transmission Date: 20061013
  Serious: Yes (Hospitalization)
  Sender: FDA-Public Use
  Company Number: 05-000553

PATIENT
  Age: 50 Year
  Sex: Female
  Weight: 104.3 kg

DRUGS (5)
  1. ESTRACE [Suspect]
     Dosage: 1 G, 3 X PER WEEK, VAGINAL
     Route: 067
     Dates: start: 20050630
  2. SYNTHROID [Concomitant]
  3. FOLIC ACID [Concomitant]
  4. OMEGA 3 (FISH OIL) [Concomitant]
  5. CATAFLAM [Concomitant]

REACTIONS (2)
  - PLEURITIC PAIN [None]
  - PULMONARY EMBOLISM [None]
